FAERS Safety Report 17406768 (Version 1)
Quarter: 2020Q1

REPORT INFORMATION
  Report Type: Spontaneous
  Country: US (occurrence: US)
  Receive Date: 20200211
  Receipt Date: 20200211
  Transmission Date: 20200409
  Serious: Yes (Other)
  Sender: FDA-Public Use
  Company Number: None

PATIENT
  Age: 59 Year
  Sex: Female
  Weight: 48.6 kg

DRUGS (15)
  1. AMINO ACIDS [Concomitant]
     Active Substance: AMINO ACIDS, SOURCE UNSPECIFIED
  2. VITA D [Concomitant]
  3. TURMERIC [Concomitant]
     Active Substance: HERBALS\TURMERIC
  4. CHEST CONGESTION RELIEF [Suspect]
     Active Substance: GUAIFENESIN
     Indication: INFLUENZA
     Dosage: ?          QUANTITY:1 TABLET(S);?
     Route: 048
     Dates: start: 20200118, end: 20200120
  5. NOVOLOG [Concomitant]
     Active Substance: INSULIN ASPART
  6. VITAMIN C [Concomitant]
     Active Substance: ASCORBIC ACID
  7. VITA E [Concomitant]
  8. VITA K [Concomitant]
     Active Substance: OCTINOXATE
  9. VITA B [Concomitant]
  10. TANDEM INSULIN PUMP [Concomitant]
  11. MG [Concomitant]
     Active Substance: MAGNESIUM
  12. ZINC. [Concomitant]
     Active Substance: ZINC
  13. SELENIUM. [Concomitant]
     Active Substance: SELENIUM
  14. VITA A [Concomitant]
  15. PRO-BIOTICS [Concomitant]

REACTIONS (1)
  - Epistaxis [None]

NARRATIVE: CASE EVENT DATE: 20200119
